FAERS Safety Report 19247146 (Version 3)
Quarter: 2021Q3

REPORT INFORMATION
  Report Type: Spontaneous
  Country: IN (occurrence: IN)
  Receive Date: 20210512
  Receipt Date: 20210915
  Transmission Date: 20211014
  Serious: Yes (Death, Hospitalization)
  Sender: FDA-Public Use
  Company Number: IN-PFIZER INC-2021487601

PATIENT
  Age: 21 Year
  Sex: Male

DRUGS (3)
  1. INONZA [Suspect]
     Active Substance: INOTUZUMAB OZOGAMICIN
     Indication: B-CELL TYPE ACUTE LEUKAEMIA
     Dosage: 2 MG ON D1 (2 VIALS), 1 MG ON D8 (1 VIALS) AND 1 MG ON D15 (1 VIALS)
     Route: 042
     Dates: start: 20210420, end: 20210507
  2. INONZA [Suspect]
     Active Substance: INOTUZUMAB OZOGAMICIN
     Dosage: 1.6 MG, ONCE DAILY, CYCLIC (D1 2 VIALS, D8 1 VIAL, D15 1 VIAL)
     Route: 042
     Dates: start: 20210515
  3. INONZA [Suspect]
     Active Substance: INOTUZUMAB OZOGAMICIN
     Dosage: 2 MG
     Route: 042
     Dates: start: 20210529, end: 20210903

REACTIONS (2)
  - COVID-19 [Unknown]
  - Death [Fatal]

NARRATIVE: CASE EVENT DATE: 202104
